FAERS Safety Report 10929911 (Version 1)
Quarter: 2015Q1

REPORT INFORMATION
  Report Type: Spontaneous
  Country: US (occurrence: None)
  Receive Date: 20150318
  Receipt Date: 20150318
  Transmission Date: 20150721
  Serious: Yes (Other)
  Sender: FDA-Public Use
  Company Number: None

PATIENT
  Age: 51 Year
  Sex: Male
  Weight: 90.72 kg

DRUGS (5)
  1. MULTIVITAMIN [Concomitant]
     Active Substance: VITAMINS
  2. ATORVASTATIN [Concomitant]
     Active Substance: ATORVASTATIN
  3. CITALOPRAN HBR [Concomitant]
  4. LEVOFLOXACIN. [Suspect]
     Active Substance: LEVOFLOXACIN
     Indication: BRONCHITIS
     Dosage: 1 CAPSULE
     Route: 048
     Dates: start: 20150305, end: 20150311
  5. KRILL OIL [Concomitant]
     Active Substance: DIETARY SUPPLEMENT

REACTIONS (1)
  - Paraesthesia [None]

NARRATIVE: CASE EVENT DATE: 20150307
